FAERS Safety Report 8454676-2 (Version None)
Quarter: 2012Q2

REPORT INFORMATION
  Report Type: 
  Country: None (occurrence: None)
  Receive Date: 20120615
  Receipt Date: 20120615
  Transmission Date: 20120825
  Serious: Yes (Other)
  Sender: FDA-Public Use
  Company Number: None

PATIENT
  Sex: Female
  Weight: 58.9676 kg

DRUGS (1)
  1. ETODOLAC [Suspect]
     Indication: SCIATICA
     Dosage: 400 MG 2 X DAILY
     Dates: start: 20120523, end: 20120531

REACTIONS (6)
  - PRODUCT TASTE ABNORMAL [None]
  - SKIN ULCER [None]
  - DRUG INEFFECTIVE [None]
  - ABDOMINAL PAIN UPPER [None]
  - PRODUCT QUALITY ISSUE [None]
  - DIARRHOEA [None]
